FAERS Safety Report 21877916 (Version 1)
Quarter: 2023Q1

REPORT INFORMATION
  Report Type: Spontaneous
  Country: US (occurrence: None)
  Receive Date: 20230117
  Receipt Date: 20230117
  Transmission Date: 20230417
  Serious: Yes (Other)
  Sender: FDA-Public Use
  Company Number: None

PATIENT
  Age: 57 Year
  Sex: Male

DRUGS (1)
  1. TEMSIROLIMUS [Suspect]
     Active Substance: TEMSIROLIMUS
     Dosage: OTHER FREQUENCY : OTHER;?
     Route: 048
     Dates: start: 20070912, end: 20071010

REACTIONS (4)
  - Rash [None]
  - Mucosal inflammation [None]
  - Blood cholesterol increased [None]
  - Blood triglycerides increased [None]

NARRATIVE: CASE EVENT DATE: 20071010
